FAERS Safety Report 6385955-0 (Version None)
Quarter: 2009Q4

REPORT INFORMATION
  Report Type: 
  Country: None (occurrence: None)
  Receive Date: 20091002
  Receipt Date: 20090203
  Transmission Date: 20100525
  Serious: No
  Sender: FDA-Public Use
  Company Number: US-ASTRAZENECA-2009UW03264

PATIENT
  Age: 69 Year
  Sex: Female
  Weight: 56.2 kg

DRUGS (1)
  1. ARIMIDEX [Suspect]
     Indication: BREAST CANCER
     Route: 048
     Dates: start: 20080301

REACTIONS (6)
  - ARTHRALGIA [None]
  - DEPRESSED MOOD [None]
  - FATIGUE [None]
  - INSOMNIA [None]
  - MUSCULOSKELETAL STIFFNESS [None]
  - WEIGHT INCREASED [None]
